FAERS Safety Report 6504760-5 (Version None)
Quarter: 2009Q4

REPORT INFORMATION
  Report Type: 
  Country: None (occurrence: None)
  Receive Date: 20091218
  Receipt Date: 20091207
  Transmission Date: 20100525
  Serious: Yes (Hospitalization)
  Sender: FDA-Public Use
  Company Number: US-ELI_LILLY_AND_COMPANY-US200912003130

PATIENT
  Sex: Female

DRUGS (1)
  1. FORTEO [Suspect]
     Indication: OSTEOPOROSIS
     Dosage: UNK, UNKNOWN
     Dates: start: 20090728

REACTIONS (8)
  - CHEST DISCOMFORT [None]
  - COUGH [None]
  - EYELID PTOSIS [None]
  - GINGIVAL DISORDER [None]
  - HEADACHE [None]
  - ORAL PAIN [None]
  - TOOTHACHE [None]
  - VIRAL INFECTION [None]
